FAERS Safety Report 21521016 (Version 1)
Quarter: 2022Q4

REPORT INFORMATION
  Report Type: Spontaneous
  Country: US (occurrence: US)
  Receive Date: 20221028
  Receipt Date: 20221028
  Transmission Date: 20230113
  Serious: Yes (Other)
  Sender: FDA-Public Use
  Company Number: US-009507513-2210USA009665

PATIENT
  Age: 90 Year
  Sex: Male

DRUGS (1)
  1. KEYTRUDA [Suspect]
     Active Substance: PEMBROLIZUMAB
     Indication: Transitional cell carcinoma
     Dosage: UNK

REACTIONS (5)
  - Pneumonia [Unknown]
  - Cardiac failure congestive [Unknown]
  - Dry eye [Unknown]
  - Skin toxicity [Unknown]
  - Rash [Unknown]
